FAERS Safety Report 6439753-X (Version None)
Quarter: 2009Q4

REPORT INFORMATION
  Report Type: 
  Country: None (occurrence: None)
  Receive Date: 20091113
  Receipt Date: 20091103
  Transmission Date: 20100525
  Serious: Yes (Death, Hospitalization)
  Sender: FDA-Public Use
  Company Number: FI-JNJFOC-20091008110

PATIENT
  Age: 63 Year
  Sex: Male

DRUGS (7)
  1. REMICADE [Suspect]
     Dosage: RECEIVED 2 INFUSIONS
     Route: 042
     Dates: start: 20090730, end: 20090813
  2. REMICADE [Suspect]
     Indication: ERYTHRODERMIC PSORIASIS
     Route: 042
     Dates: start: 20090730, end: 20090813
  3. METHOTREXATE [Concomitant]
     Indication: PSORIASIS
  4. ENALAPRIL [Concomitant]
     Indication: HYPERTENSION
     Route: 048
  5. NORVASC [Concomitant]
     Indication: HYPERTENSION
     Route: 048
  6. SYMBICORT [Concomitant]
     Indication: CHRONIC OBSTRUCTIVE PULMONARY DISEASE
     Route: 055
  7. SYMBICORT [Concomitant]
     Indication: ASTHMA
     Route: 055

REACTIONS (6)
  - CRITICAL ILLNESS POLYNEUROPATHY [None]
  - CYTOMEGALOVIRUS VIRAEMIA [None]
  - DIARRHOEA [None]
  - HYPONATRAEMIA [None]
  - NAUSEA [None]
  - PNEUMONIA [None]
